FAERS Safety Report 5643125-5 (Version None)
Quarter: 2008Q1

REPORT INFORMATION
  Report Type: 
  Country: None (occurrence: None)
  Receive Date: 20080228
  Receipt Date: 20080216
  Transmission Date: 20080703
  Serious: Yes (Hospitalization)
  Sender: FDA-Public Use
  Company Number: GB-ROCHE-547896

PATIENT
  Age: 53 Year
  Sex: Female
  Weight: 83.9 kg

DRUGS (2)
  1. XENICAL [Suspect]
     Indication: OBESITY
     Route: 048
     Dates: start: 20070522, end: 20080126
  2. PROZAC [Concomitant]
     Indication: DEPRESSION
     Route: 048

REACTIONS (1)
  - RENAL FAILURE [None]
